FAERS Safety Report 4832498-9 (Version None)
Quarter: 2005Q4

REPORT INFORMATION
  Report Type: 
  Country: None (occurrence: None)
  Receive Date: 20051117
  Receipt Date: 20051117
  Transmission Date: 20060501
  Serious: No
  Sender: FDA-Public Use
  Company Number: None

PATIENT
  Sex: Female
  Weight: 68.0396 kg

DRUGS (3)
  1. PHENYLPROPANOLAMINE HCL W/ GUAIFENESIN [Suspect]
     Dosage: ONE TAB QD PO
     Route: 048
     Dates: start: 20050830, end: 20051116
  2. PROFERRIN FORTE [Suspect]
     Indication: ANAEMIA
     Dosage: ONE TAB QD PO
     Route: 048
  3. PROFERRIN FORTE [Suspect]
     Indication: TWIN PREGNANCY
     Dosage: ONE TAB QD PO
     Route: 048

REACTIONS (4)
  - DRUG DISPENSING ERROR [None]
  - DRUG EXPOSURE DURING PREGNANCY [None]
  - MEDICATION ERROR [None]
  - WRONG DRUG ADMINISTERED [None]
